FAERS Safety Report 8850745 (Version 1)
Quarter: 2012Q4

REPORT INFORMATION
  Report Type: 
  Country: US (occurrence: US)
  Receive Date: 20121019
  Receipt Date: 20121019
  Transmission Date: 20130627
  Serious: No
  Sender: FDA-Public Use
  Company Number: US-009507513-1210USA007219

PATIENT
  Sex: Female

DRUGS (4)
  1. JANUVIA [Suspect]
     Dosage: 100 mg, qd
     Route: 048
     Dates: start: 20110801, end: 20121011
  2. JANUVIA [Suspect]
     Dosage: UNK
  3. PRILOSEC [Concomitant]
  4. HORMONAL CONTRACEPTIVES (UNSPECIFIED) [Concomitant]

REACTIONS (2)
  - Abdominal pain [Unknown]
  - Lipase increased [Unknown]
